FAERS Safety Report 18732857 (Version 1)
Quarter: 2021Q1

REPORT INFORMATION
  Report Type: Spontaneous
  Country: GB (occurrence: GB)
  Receive Date: 20210113
  Receipt Date: 20210113
  Transmission Date: 20210419
  Serious: No
  Sender: FDA-Public Use
  Company Number: GB-ALKEM LABORATORIES LIMITED-GB-ALKEM-2020-08919

PATIENT
  Age: 75 Year
  Sex: Female
  Weight: 95 kg

DRUGS (9)
  1. EZETIMIBE. [Suspect]
     Active Substance: EZETIMIBE
     Indication: PRODUCT USED FOR UNKNOWN INDICATION
     Dosage: ONE TO BE TAKEN EACH DAY
     Route: 065
     Dates: start: 20201014, end: 20201106
  2. LEVOTHYROXINE. [Concomitant]
     Active Substance: LEVOTHYROXINE
     Indication: PRODUCT USED FOR UNKNOWN INDICATION
     Dosage: ONE TO BE TAKEN TUESDAY, THURSDAY, SATURDAY + SUNDAY AT LEAST 30 MIN BEFORE BREAKFAST
     Route: 065
     Dates: start: 20200821
  3. NEBIVOLOL. [Concomitant]
     Active Substance: NEBIVOLOL
     Indication: ATRIAL FIBRILLATION
     Dosage: TAKE ONE TABLET DAILY
     Route: 065
     Dates: start: 20201002, end: 20201014
  4. SALBUTAMOL [Concomitant]
     Active Substance: ALBUTEROL
     Dosage: UNK
     Route: 065
     Dates: start: 20200810, end: 20200922
  5. CLENIL MODULITE [Concomitant]
     Active Substance: BECLOMETHASONE DIPROPIONATE
     Indication: PRODUCT USED FOR UNKNOWN INDICATION
     Dosage: TWO PUFFS VIA SPACER TWICE DAILY
     Route: 065
     Dates: start: 20201014
  6. EZETIMIBE. [Concomitant]
     Active Substance: EZETIMIBE
     Indication: PRODUCT USED FOR UNKNOWN INDICATION
     Dosage: ONE TO BE TAKEN EACH DAY
     Route: 065
     Dates: start: 20201014, end: 20201106
  7. PARACETAMOL [Concomitant]
     Active Substance: ACETAMINOPHEN
     Indication: PRODUCT USED FOR UNKNOWN INDICATION
     Dosage: TWO TO BE TAKEN FOUR TIMES DAILY
     Route: 065
     Dates: start: 20200810
  8. SALBUTAMOL [Concomitant]
     Active Substance: ALBUTEROL
     Indication: PRODUCT USED FOR UNKNOWN INDICATION
     Dosage: 2?4 PUFFS VIA SPACER AS REQUIRED
     Route: 065
     Dates: start: 20201014
  9. FLUAD NOS [Concomitant]
     Active Substance: INFLUENZA VIRUS VACCINE
     Indication: INFLUENZA IMMUNISATION
     Dosage: AS DIRECTED
     Route: 065
     Dates: start: 20201019, end: 20201019

REACTIONS (1)
  - Pain in extremity [Recovering/Resolving]

NARRATIVE: CASE EVENT DATE: 20201015
